FAERS Safety Report 20744523 (Version 1)
Quarter: 2022Q2

REPORT INFORMATION
  Report Type: Other
  Country: US (occurrence: None)
  Receive Date: 20220425
  Receipt Date: 20220425
  Transmission Date: 20220721
  Serious: Yes (Other)
  Sender: FDA-Public Use
  Company Number: US-ROCHE-3015793

PATIENT
  Sex: Female
  Weight: 81 kg

DRUGS (1)
  1. OCREVUS [Suspect]
     Active Substance: OCRELIZUMAB
     Indication: Multiple sclerosis
     Route: 065

REACTIONS (8)
  - Myelitis transverse [Unknown]
  - Multiple sclerosis [Unknown]
  - Vitamin D decreased [Unknown]
  - Muscle fatigue [Unknown]
  - Magnetic resonance imaging head abnormal [Unknown]
  - Magnetic resonance imaging spinal abnormal [Unknown]
  - Muscle spasms [Unknown]
  - White matter lesion [Unknown]
